FAERS Safety Report 20859757 (Version 1)
Quarter: 2022Q2

REPORT INFORMATION
  Report Type: Spontaneous
  Country: US (occurrence: US)
  Receive Date: 20220523
  Receipt Date: 20220523
  Transmission Date: 20220721
  Serious: No
  Sender: FDA-Public Use
  Company Number: US-TEVA-2022-US-2038413

PATIENT
  Age: 64 Year
  Sex: Female

DRUGS (1)
  1. LOXAPINE [Suspect]
     Active Substance: LOXAPINE
     Indication: Insomnia
     Route: 065
     Dates: start: 1989

REACTIONS (4)
  - Dry mouth [Unknown]
  - Dental caries [Unknown]
  - Anxiety [Unknown]
  - Drug ineffective for unapproved indication [Unknown]

NARRATIVE: CASE EVENT DATE: 20210101
